FAERS Safety Report 20485525 (Version 2)
Quarter: 2022Q1

REPORT INFORMATION
  Report Type: Other
  Country: US (occurrence: US)
  Receive Date: 20220217
  Receipt Date: 20220321
  Transmission Date: 20220424
  Serious: Yes (Hospitalization)
  Sender: FDA-Public Use
  Company Number: US-NEUROCRINE BIOSCIENCES INC.-2022NBI00764

PATIENT

DRUGS (1)
  1. INGREZZA [Suspect]
     Active Substance: VALBENAZINE
     Indication: Tardive dyskinesia
     Dosage: 80 MILLIGRAM, QD
     Route: 048
     Dates: start: 20210216

REACTIONS (6)
  - Femur fracture [Unknown]
  - Thrombosis [Unknown]
  - Gastric bypass [Unknown]
  - Cystitis [Unknown]
  - Pollakiuria [Unknown]
  - Melaena [Unknown]

NARRATIVE: CASE EVENT DATE: 20220201
